FAERS Safety Report 21350505 (Version 4)
Quarter: 2023Q1

REPORT INFORMATION
  Report Type: Report from Study
  Country: DE (occurrence: None)
  Receive Date: 20220919
  Receipt Date: 20230224
  Transmission Date: 20230418
  Serious: Yes (Hospitalization)
  Sender: FDA-Public Use
  Company Number: DE-ROCHE-3177086

PATIENT
  Age: 54 Year
  Sex: Female
  Weight: 70.5 kg

DRUGS (15)
  1. ATEZOLIZUMAB [Suspect]
     Active Substance: ATEZOLIZUMAB
     Indication: Triple negative breast cancer
     Dosage: DATE OF LAST DOSE PRIOR TO SAE: 01/AUG/2022
     Route: 041
     Dates: start: 20220509
  2. PACLITAXEL [Suspect]
     Active Substance: PACLITAXEL
     Indication: Triple negative breast cancer
     Dosage: DATE OF LAST DOSE PRIOR TO SAE: 25/JUL/2022
     Route: 042
     Dates: start: 20220509
  3. CARBOPLATIN [Suspect]
     Active Substance: CARBOPLATIN
     Indication: Triple negative breast cancer
     Dosage: DATE OF LAST DOSE PRIOR TO SAE: 25/JUL/2022
     Route: 042
     Dates: start: 20220509
  4. EPIRUBICIN [Suspect]
     Active Substance: EPIRUBICIN
     Indication: Triple negative breast cancer
     Dosage: DATE OF LAST DOSE PRIOR TO SAE: 01/AUG/2022?DOSE REDUCED TO 75 MG.
     Route: 042
     Dates: start: 20220801
  5. CYCLOPHOSPHAMIDE [Suspect]
     Active Substance: CYCLOPHOSPHAMIDE
     Indication: Triple negative breast cancer
     Dosage: DATE OF LAST DOSE PRIOR TO SAE: 01/AUG/2022?DOSE REDUCED TO 450 MG.
     Route: 042
     Dates: start: 20220801
  6. LEVOTHYROXINE SODIUM [Concomitant]
     Active Substance: LEVOTHYROXINE SODIUM
     Dates: start: 201405, end: 20220527
  7. LEVOTHYROXINE SODIUM [Concomitant]
     Active Substance: LEVOTHYROXINE SODIUM
     Dates: start: 20220528
  8. APREPITANT [Concomitant]
     Active Substance: APREPITANT
     Dates: start: 20220509, end: 20221008
  9. GRANISETRON [Concomitant]
     Active Substance: GRANISETRON
     Dates: start: 20220509, end: 20221006
  10. GRANISETRON [Concomitant]
     Active Substance: GRANISETRON
     Dates: start: 20220509, end: 20221008
  11. DEXAMETHASONE [Concomitant]
     Active Substance: DEXAMETHASONE
     Dates: start: 20220509, end: 20221008
  12. DEXAMETHASONE [Concomitant]
     Active Substance: DEXAMETHASONE
     Dates: start: 20220509, end: 20221006
  13. METOCLOPRAMIDE [Concomitant]
     Active Substance: METOCLOPRAMIDE
     Dates: start: 20220509, end: 20220725
  14. DIMETHINDENE [Concomitant]
     Active Substance: DIMETHINDENE
     Dates: start: 20220509, end: 20220725
  15. MESNA [Concomitant]
     Active Substance: MESNA
     Dates: start: 20220801, end: 20221006

REACTIONS (1)
  - Febrile neutropenia [Recovered/Resolved]

NARRATIVE: CASE EVENT DATE: 20220812
